FAERS Safety Report 6988708-5 (Version None)
Quarter: 2010Q3

REPORT INFORMATION
  Report Type: 
  Country: None (occurrence: None)
  Receive Date: 20100916
  Receipt Date: 20100906
  Transmission Date: 20110219
  Serious: Yes (Hospitalization, Other)
  Sender: FDA-Public Use
  Company Number: PHHY2010DE59320

PATIENT
  Age: 59 Year
  Sex: Female

DRUGS (3)
  1. DIOVAN HCT [Suspect]
     Indication: HYPERTENSION
     Dosage: 300 MG/25 MG
     Route: 048
  2. RASILEZ [Suspect]
     Indication: HYPERTENSION
     Dosage: UNK
     Route: 048
  3. NEBIVOLOL HCL [Concomitant]
     Indication: HYPERTENSION
     Dosage: 5 MG
     Route: 048

REACTIONS (10)
  - ASTHENIA [None]
  - BACTERIAL INFECTION [None]
  - BILE DUCT EXPLORATION [None]
  - BLOOD BILIRUBIN INCREASED [None]
  - DIZZINESS [None]
  - INFLAMMATION [None]
  - JAUNDICE [None]
  - LIVER DISORDER [None]
  - PAIN [None]
  - YELLOW SKIN [None]
